FAERS Safety Report 8017362-9 (Version None)
Quarter: 2012Q1

REPORT INFORMATION
  Report Type: 
  Country: None (occurrence: None)
  Receive Date: 20120102
  Receipt Date: 20111227
  Transmission Date: 20120608
  Serious: Yes (Hospitalization)
  Sender: FDA-Public Use
  Company Number: US-ROCHE-1026128

PATIENT
  Sex: Female
  Weight: 66.738 kg

DRUGS (6)
  1. BLINDED TMC435 (NS3/4A PROTEASE INHIBITOR) [Suspect]
     Indication: HEPATITIS C
     Route: 048
     Dates: start: 20110805, end: 20111028
  2. HYDROXYZINE [Concomitant]
  3. PEGINTERFERON ALFA-2A [Suspect]
     Indication: HEPATITIS C
     Route: 058
     Dates: start: 20110805
  4. COPEGUS [Suspect]
     Indication: HEPATITIS C
     Route: 048
     Dates: start: 20110805, end: 20111215
  5. POTASSIUM [Concomitant]
  6. URSODIOL [Concomitant]

REACTIONS (1)
  - FLUID OVERLOAD [None]
